FAERS Safety Report 6190473-9 (Version None)
Quarter: 2009Q2

REPORT INFORMATION
  Report Type: 
  Country: None (occurrence: None)
  Receive Date: 20090513
  Receipt Date: 20090513
  Transmission Date: 20091009
  Serious: Yes (Life-Threatening, Hospitalization)
  Sender: FDA-Public Use
  Company Number: None

PATIENT
  Age: 70 Year
  Sex: Female
  Weight: 53.5244 kg

DRUGS (1)
  1. XOLAIR [Suspect]
     Indication: ASTHMA
     Dosage: 1/WEEK
     Dates: start: 20030601, end: 20050601

REACTIONS (2)
  - BASOSQUAMOUS CARCINOMA OF SKIN [None]
  - COLON CANCER [None]
